FAERS Safety Report 9463563 (Version 1)
Quarter: 2013Q3

REPORT INFORMATION
  Report Type: Spontaneous
  Country: US (occurrence: US)
  Receive Date: 20130819
  Receipt Date: 20130819
  Transmission Date: 20140515
  Serious: Yes (Other)
  Sender: FDA-Public Use
  Company Number: US-BRISTOL-MYERS SQUIBB COMPANY-19183821

PATIENT
  Age: 81 Year
  Sex: Female
  Weight: 56.69 kg

DRUGS (4)
  1. ELIQUIS [Suspect]
     Dates: start: 2013
  2. EYE DROPS [Concomitant]
     Indication: GLAUCOMA
  3. ENBREL [Concomitant]
  4. VITAMIN D [Concomitant]

REACTIONS (2)
  - Haematoma [Unknown]
  - Arrhythmia [Unknown]
